FAERS Safety Report 10696791 (Version 7)
Quarter: 2015Q4

REPORT INFORMATION
  Report Type: Spontaneous
  Country: CA (occurrence: CA)
  Receive Date: 20150108
  Receipt Date: 20151124
  Transmission Date: 20160304
  Serious: Yes (Other)
  Sender: FDA-Public Use
  Company Number: CA-ROCHE-1518505

PATIENT
  Age: 37 Year
  Sex: Male

DRUGS (12)
  1. XOLAIR [Suspect]
     Active Substance: OMALIZUMAB
     Indication: ASTHMA
     Route: 058
     Dates: start: 20141223
  2. OTRIVIN [Concomitant]
     Active Substance: XYLOMETAZOLINE
  3. VENTOLIN [Concomitant]
     Active Substance: ALBUTEROL SULFATE
  4. SPIRIVA [Concomitant]
     Active Substance: TIOTROPIUM BROMIDE MONOHYDRATE
  5. XOLAIR [Suspect]
     Active Substance: OMALIZUMAB
     Route: 058
     Dates: start: 20150113
  6. TECTA [Concomitant]
     Active Substance: PANTOPRAZOLE MAGNESIUM
  7. XOLAIR [Suspect]
     Active Substance: OMALIZUMAB
     Route: 058
     Dates: start: 20150421
  8. ADVAIR HFA [Concomitant]
     Active Substance: FLUTICASONE PROPIONATE\SALMETEROL XINAFOATE
  9. FLOVENT [Concomitant]
     Active Substance: FLUTICASONE PROPIONATE
  10. RHINOCORT AQUA [Concomitant]
     Active Substance: BUDESONIDE
  11. XOLAIR [Suspect]
     Active Substance: OMALIZUMAB
     Route: 058
     Dates: start: 20150324
  12. OMNARIS [Concomitant]
     Active Substance: CICLESONIDE

REACTIONS (9)
  - Nasal congestion [Unknown]
  - Bronchitis [Unknown]
  - Lower respiratory tract infection [Unknown]
  - Malaise [Unknown]
  - Pharyngitis [Unknown]
  - Blood pressure increased [Recovering/Resolving]
  - Rhinitis [Unknown]
  - Drug ineffective [Unknown]
  - Asthma [Unknown]

NARRATIVE: CASE EVENT DATE: 20150102
